FAERS Safety Report 4525568-6 (Version None)
Quarter: 2004Q4

REPORT INFORMATION
  Report Type: 
  Country: None (occurrence: None)
  Receive Date: 20041116
  Receipt Date: 20041001
  Transmission Date: 20050328
  Serious: No
  Sender: FDA-Public Use
  Company Number: S04-USA-06444-01

PATIENT
  Age: 67 Year
  Sex: Female

DRUGS (8)
  1. NAMENDA [Suspect]
     Indication: TINNITUS
     Dosage: 10 MG BID PO
     Route: 048
     Dates: start: 20040805
  2. ESTRATEST (ESTRADIOL, METHYLTESTOSTERONE) [Suspect]
     Indication: HORMONE REPLACEMENT THERAPY
     Dosage: 2.5 MG QD PO
     Route: 048
  3. ZYRTEC [Concomitant]
  4. FLUOXETINE [Concomitant]
  5. CLONAZEPAM [Concomitant]
  6. PREVACID [Concomitant]
  7. TIAZAC [Concomitant]
  8. MAXZIDE [Concomitant]

REACTIONS (2)
  - DRUG INTERACTION [None]
  - HAIR GROWTH ABNORMAL [None]
